FAERS Safety Report 4403086-3 (Version None)
Quarter: 2004Q3

REPORT INFORMATION
  Report Type: 
  Country: None (occurrence: None)
  Receive Date: 20040721
  Receipt Date: 20040224
  Transmission Date: 20050211
  Serious: Yes (Hospitalization)
  Sender: FDA-Public Use
  Company Number: US-GLAXOSMITHKLINE-A0499633A

PATIENT
  Age: 41 Year
  Sex: Female
  Weight: 93.2 kg

DRUGS (2)
  1. IMITREX [Suspect]
     Indication: MIGRAINE
     Dosage: 50MG AS REQUIRED
     Route: 048
     Dates: start: 20010101, end: 20021202
  2. NO CONCURRENT MEDICATIONS [Concomitant]

REACTIONS (6)
  - CHEST DISCOMFORT [None]
  - CHEST PAIN [None]
  - CORONARY ARTERY DISEASE [None]
  - DYSPNOEA [None]
  - ELECTROCARDIOGRAM T WAVE INVERSION [None]
  - NAUSEA [None]
